FAERS Safety Report 16937485 (Version 3)
Quarter: 2020Q2

REPORT INFORMATION
  Report Type: Report from Study
  Country: JP (occurrence: JP)
  Receive Date: 20191019
  Receipt Date: 20200403
  Transmission Date: 20200713
  Serious: Yes (Other)
  Sender: FDA-Public Use
  Company Number: JP-ROCHE-2374545

PATIENT

DRUGS (2)
  1. OXALIPLATIN. [Suspect]
     Active Substance: OXALIPLATIN
     Indication: GASTRIC CANCER STAGE III
     Dosage: DAY 1, EVERY 3 WEEKS. THREE CYCLES OF NAC AND FIVE CYCLES OF ADJUVANT THERAPY.
     Route: 042
  2. CAPECITABINE. [Suspect]
     Active Substance: CAPECITABINE
     Indication: GASTRIC CANCER STAGE III
     Dosage: THREE CYCLES OF NEOADJUVANT CHEMOTHERAPY AND FIVE CYCLES OF ADJUVANT CHEMOTHERAPY WERE ADMINISTERED
     Route: 048

REACTIONS (11)
  - Fatigue [Unknown]
  - Enteritis [Unknown]
  - Decreased appetite [Unknown]
  - Stomatitis [Unknown]
  - Parkinson^s disease [Unknown]
  - Anaemia [Unknown]
  - Neutropenia [Unknown]
  - Thrombocytopenia [Unknown]
  - Diarrhoea [Unknown]
  - Leukopenia [Unknown]
  - Nausea [Unknown]
